FAERS Safety Report 25069240 (Version 3)
Quarter: 2025Q2

REPORT INFORMATION
  Report Type: Spontaneous
  Country: US (occurrence: US)
  Receive Date: 20250312
  Receipt Date: 20250403
  Transmission Date: 20250717
  Serious: No
  Sender: IPSEN
  Company Number: US-IPSEN Group, Research and Development-2025-05485

PATIENT

DRUGS (1)
  1. DYSPORT [Suspect]
     Active Substance: ABOBOTULINUMTOXINA
     Indication: Skin wrinkling
     Route: 065
     Dates: start: 20250305, end: 20250305

REACTIONS (3)
  - Eyelid ptosis [Unknown]
  - Head discomfort [Unknown]
  - Eyelid oedema [Unknown]

NARRATIVE: CASE EVENT DATE: 20250306
